FAERS Safety Report 8916686 (Version 1)
Quarter: 2012Q4

REPORT INFORMATION
  Report Type: 
  Country: FR (occurrence: FR)
  Receive Date: 20121120
  Receipt Date: 20121120
  Transmission Date: 20130627
  Serious: Yes (Hospitalization)
  Sender: FDA-Public Use
  Company Number: FR-ROCHE-1157728

PATIENT
  Age: 69 Year
  Sex: Female

DRUGS (9)
  1. MABTHERA [Suspect]
     Indication: LYMPHOMA
     Route: 042
     Dates: start: 20120611, end: 20120611
  2. MABTHERA [Suspect]
     Dosage: dose decreased
     Route: 065
  3. AMOXICLAV [Concomitant]
     Route: 065
  4. CORTANCYL [Concomitant]
  5. INIPOMP [Concomitant]
  6. PLAQUENIL [Concomitant]
  7. PREVISCAN [Concomitant]
     Route: 065
  8. THERALENE (FRANCE) [Concomitant]
  9. CHLORAMBUCIL [Concomitant]

REACTIONS (1)
  - Parotid gland enlargement [Recovered/Resolved]
